FAERS Safety Report 7286521-5 (Version None)
Quarter: 2011Q1

REPORT INFORMATION
  Report Type: 
  Country: None (occurrence: None)
  Receive Date: 20110210
  Receipt Date: 20110204
  Transmission Date: 20110831
  Serious: Yes (Other)
  Sender: FDA-Public Use
  Company Number: BR-PFIZER INC-2011025750

PATIENT
  Sex: Male

DRUGS (1)
  1. LYRICA [Suspect]
     Dosage: 75MG
     Route: 048

REACTIONS (3)
  - RADIOTHERAPY [None]
  - PRODUCT TASTE ABNORMAL [None]
  - DYSPHAGIA [None]
